FAERS Safety Report 15465256 (Version 1)
Quarter: 2018Q4

REPORT INFORMATION
  Report Type: Spontaneous
  Country: GB (occurrence: DE)
  Receive Date: 20181004
  Receipt Date: 20181004
  Transmission Date: 20190204
  Serious: Yes (Other)
  Sender: FDA-Public Use
  Company Number: DE-FRESENIUS KABI-FK201810209

PATIENT
  Age: 33 Year
  Sex: Female
  Weight: 70 kg

DRUGS (16)
  1. FOLS?URE [Concomitant]
     Indication: PROPHYLAXIS OF NEURAL TUBE DEFECT
     Route: 048
     Dates: start: 20180401, end: 20180428
  2. SODIUM PICOSULFATE [Concomitant]
     Active Substance: SODIUM PICOSULFATE
     Indication: CONSTIPATION
     Route: 048
     Dates: start: 20180428, end: 20180428
  3. VOMEX A [Concomitant]
     Active Substance: DIMENHYDRINATE
     Indication: NAUSEA
     Route: 048
  4. OXALIPLATIN (MANUFACTURER UNKNOWN) [Suspect]
     Active Substance: OXALIPLATIN
     Indication: ADENOCARCINOMA OF COLON
     Route: 041
     Dates: start: 20180403, end: 20180426
  5. 5-FLUOROURACIL [Concomitant]
     Active Substance: FLUOROURACIL
     Indication: ADENOCARCINOMA OF COLON
     Dosage: 2800 [MG/M? /INSGESAMT ]/ FOLFOX
     Route: 041
     Dates: start: 20180403, end: 20180428
  6. FOLINIC ACID [Concomitant]
     Active Substance: LEUCOVORIN
     Indication: DRUG TOXICITY PROPHYLAXIS
     Route: 041
     Dates: start: 20180403, end: 20180428
  7. OXYCODONE [Concomitant]
     Active Substance: OXYCODONE
     Indication: CANCER PAIN
     Route: 048
     Dates: start: 20180428, end: 20180428
  8. MISOPROSTOL. [Concomitant]
     Active Substance: MISOPROSTOL
     Indication: ABORTION INDUCED
     Route: 048
     Dates: start: 20180430, end: 20180430
  9. PIPERACILLIN AND TAZOBACTAM [Concomitant]
     Active Substance: PIPERACILLIN SODIUM\TAZOBACTAM SODIUM
     Indication: INFECTION
     Route: 042
  10. CEFTRIAXON [Concomitant]
     Active Substance: CEFTRIAXONE
     Indication: INFECTION
     Route: 042
     Dates: start: 20180415, end: 20180418
  11. METRONIDAZOL [Concomitant]
     Active Substance: METRONIDAZOLE
     Indication: INFECTION
     Route: 042
     Dates: start: 20180415, end: 20180418
  12. CEFUROXIM [Concomitant]
     Active Substance: CEFUROXIME
     Indication: INFECTION
     Route: 048
     Dates: start: 20180405, end: 20180415
  13. INFLUENZA VACCINE [Concomitant]
     Active Substance: INFLUENZA VIRUS VACCINE
     Indication: IMMUNISATION
     Route: 030
  14. MEROPENEM. [Concomitant]
     Active Substance: MEROPENEM
     Indication: INFECTION
     Route: 042
     Dates: start: 20180418, end: 20180426
  15. VANCOMYCIN [Concomitant]
     Active Substance: VANCOMYCIN
     Indication: INFECTION
     Route: 042
     Dates: start: 20180418, end: 20180426
  16. MACROGOL [Concomitant]
     Active Substance: POLYETHYLENE GLYCOLS
     Indication: CONSTIPATION
     Route: 048
     Dates: start: 20180428, end: 20180428

REACTIONS (2)
  - Exposure during pregnancy [Recovered/Resolved]
  - Abortion spontaneous [Recovered/Resolved]
